FAERS Safety Report 14167049 (Version 3)
Quarter: 2018Q3

REPORT INFORMATION
  Report Type: Report from Study
  Country: US (occurrence: US)
  Receive Date: 20171108
  Receipt Date: 20180718
  Transmission Date: 20181010
  Serious: Yes (Death, Other)
  Sender: FDA-Public Use
  Company Number: US-UCBSA-2017044560

PATIENT
  Age: 71 Year
  Sex: Male

DRUGS (1)
  1. LACOSAMIDE. [Suspect]
     Active Substance: LACOSAMIDE
     Indication: SEIZURE
     Dosage: 200 MG, 2X/DAY (BID)
     Route: 048
     Dates: start: 2013

REACTIONS (3)
  - Lung neoplasm malignant [Unknown]
  - Death [Fatal]
  - Renal cancer [Unknown]

NARRATIVE: CASE EVENT DATE: 2015
